FAERS Safety Report 14098016 (Version 1)
Quarter: 2017Q4

REPORT INFORMATION
  Report Type: Report from Study
  Country: US (occurrence: US)
  Receive Date: 20171016
  Receipt Date: 20171016
  Transmission Date: 20180321
  Serious: No
  Sender: FDA-Public Use
  Company Number: US-AMGEN-USASP2017011719

PATIENT
  Age: 62 Year
  Sex: Female
  Weight: 53.61 kg

DRUGS (5)
  1. METOPROLOL. [Concomitant]
     Active Substance: METOPROLOL
  2. TOPAMAX [Concomitant]
     Active Substance: TOPIRAMATE
  3. PROLIA [Suspect]
     Active Substance: DENOSUMAB
     Indication: OSTEOPOROSIS POSTMENOPAUSAL
     Dosage: UNK
     Route: 065
     Dates: start: 201611
  4. MENEST [Concomitant]
     Active Substance: ESTROGENS, ESTERIFIED
  5. TRAZODONE [Concomitant]
     Active Substance: TRAZODONE HYDROCHLORIDE

REACTIONS (8)
  - Back pain [Not Recovered/Not Resolved]
  - Mobility decreased [Unknown]
  - Malaise [Unknown]
  - Pelvic deformity [Unknown]
  - Spinal deformity [Unknown]
  - Fall [Unknown]
  - Nausea [Unknown]
  - Arthritis [Unknown]

NARRATIVE: CASE EVENT DATE: 2015
